FAERS Safety Report 5395716-7 (Version None)
Quarter: 2007Q3

REPORT INFORMATION
  Report Type: 
  Country: None (occurrence: None)
  Receive Date: 20070718
  Receipt Date: 20070507
  Transmission Date: 20080115
  Serious: Yes (Other)
  Sender: FDA-Public Use
  Company Number: 2006130551

PATIENT
  Age: 50 Year
  Sex: Male
  Weight: 111.1 kg

DRUGS (2)
  1. CELEBREX [Suspect]
     Indication: ANTIINFLAMMATORY THERAPY
     Dates: start: 19990206, end: 20050122
  2. CELEBREX [Suspect]
     Indication: PAIN
     Dates: start: 19990206, end: 20050122

REACTIONS (2)
  - CEREBROVASCULAR ACCIDENT [None]
  - MYOCARDIAL INFARCTION [None]
